FAERS Safety Report 14563707 (Version 2)
Quarter: 2018Q2

REPORT INFORMATION
  Report Type: Spontaneous
  Country: DE (occurrence: DE)
  Receive Date: 20180222
  Receipt Date: 20180528
  Transmission Date: 20180711
  Serious: Yes (Hospitalization)
  Sender: FDA-Public Use
  Company Number: PHHY2018DE028907

PATIENT
  Age: 80 Year
  Sex: Female
  Weight: 83 kg

DRUGS (33)
  1. CARBOPLATIN. [Suspect]
     Active Substance: CARBOPLATIN
     Indication: PRODUCT USED FOR UNKNOWN INDICATION
     Dosage: 399.2 MG, UNK
     Route: 042
     Dates: start: 20171116, end: 20171116
  2. EMEND [Concomitant]
     Active Substance: APREPITANT
     Dosage: 1 MG, QD
     Route: 048
     Dates: start: 20171230
  3. VOMEX A [Concomitant]
     Active Substance: DIMENHYDRINATE
     Indication: VOMITING
     Dosage: 1 OT, PRN
     Route: 065
  4. DEXAMETHASONE. [Concomitant]
     Active Substance: DEXAMETHASONE
     Indication: PREMEDICATION
     Dosage: 20 MG, QD
     Route: 042
     Dates: start: 20171228, end: 20171228
  5. SPIRONOLACTON [Concomitant]
     Active Substance: SPIRONOLACTONE
     Indication: CARDIAC FAILURE
     Dosage: 25 MG, QD
     Route: 048
  6. ONDANSETRON [Concomitant]
     Active Substance: ONDANSETRON
     Indication: VOMITING
  7. DEXAMETHASONE. [Concomitant]
     Active Substance: DEXAMETHASONE
     Dosage: 8 MG, BID
     Route: 048
     Dates: start: 20171230
  8. RANITIDIN [Concomitant]
     Active Substance: RANITIDINE HYDROCHLORIDE
     Indication: PREMEDICATION
     Dosage: 50 MG, QD
     Route: 042
     Dates: start: 20171228, end: 20171228
  9. ASPIRIN. [Concomitant]
     Active Substance: ASPIRIN
     Indication: CARDIAC FAILURE
     Dosage: 100 MG, QD
     Route: 048
     Dates: start: 1997
  10. CARBOPLATIN. [Suspect]
     Active Substance: CARBOPLATIN
     Dosage: 402.65 MG, UNK
     Route: 042
     Dates: start: 20171228
  11. PARACETAMOL [Concomitant]
     Active Substance: ACETAMINOPHEN
     Indication: PROPHYLAXIS
     Dosage: 2 DF, QD
     Route: 048
     Dates: start: 20171229, end: 20171230
  12. PACLITAXEL. [Suspect]
     Active Substance: PACLITAXEL
     Dosage: 290.5 MG, UNK
     Route: 042
     Dates: start: 20171228
  13. DEXAMETHASONE. [Concomitant]
     Active Substance: DEXAMETHASONE
     Indication: PROPHYLAXIS
     Dosage: 8 MG, BID
     Route: 048
     Dates: start: 20171229, end: 20171229
  14. CLEMASTINE [Concomitant]
     Active Substance: CLEMASTINE
     Indication: PREMEDICATION
     Dosage: 50 MG, QD
     Route: 042
     Dates: start: 20171228, end: 20171228
  15. CARVEDILOL. [Concomitant]
     Active Substance: CARVEDILOL
     Indication: CARDIAC FAILURE
     Dosage: 0.5 DF, BID (12.5MG DAILY)
     Route: 048
     Dates: start: 1997
  16. PANTOPRAZOLE [Concomitant]
     Active Substance: PANTOPRAZOLE
     Indication: NAUSEA
     Dosage: 40 MG, QD
     Route: 042
     Dates: start: 20180103, end: 20180104
  17. ONDANSETRON [Concomitant]
     Active Substance: ONDANSETRON
     Indication: ANTIEMETIC SUPPORTIVE CARE
     Dosage: 8 MG, PRN
     Route: 048
     Dates: start: 20171229
  18. AVELUMAB [Suspect]
     Active Substance: AVELUMAB
     Dosage: 600 MG, UNK
     Route: 042
     Dates: start: 20171229
  19. CLEXANE [Concomitant]
     Active Substance: ENOXAPARIN SODIUM
     Indication: PROPHYLAXIS
     Dosage: 40 MG, QD
     Route: 058
     Dates: start: 20180103
  20. PANTOPRAZOLE [Concomitant]
     Active Substance: PANTOPRAZOLE
     Indication: PROPHYLAXIS
     Dosage: 1 OT, PRN
     Route: 042
  21. ATORVASTATIN [Concomitant]
     Active Substance: ATORVASTATIN
     Indication: CARDIAC FAILURE
     Dosage: 0.5 DF, QD
     Route: 065
  22. CARBOPLATIN. [Suspect]
     Active Substance: CARBOPLATIN
     Dosage: 445.65 MG, UNK
     Route: 042
     Dates: start: 20171208, end: 20171208
  23. PACLITAXEL. [Suspect]
     Active Substance: PACLITAXEL
     Indication: PRODUCT USED FOR UNKNOWN INDICATION
     Dosage: 290.5 MG, UNK
     Route: 042
     Dates: start: 20171116, end: 20171116
  24. PACLITAXEL. [Suspect]
     Active Substance: PACLITAXEL
     Dosage: 288.75 MG, UNK
     Route: 042
     Dates: start: 20171207, end: 20171207
  25. AVELUMAB [Suspect]
     Active Substance: AVELUMAB
     Indication: PRODUCT USED FOR UNKNOWN INDICATION
     Dosage: 605 MG, UNK
     Route: 042
     Dates: start: 20171117, end: 20171117
  26. AVELUMAB [Suspect]
     Active Substance: AVELUMAB
     Dosage: 590 MG, UNK
     Route: 042
     Dates: start: 20171208, end: 20171208
  27. EMEND [Concomitant]
     Active Substance: APREPITANT
     Indication: PROPHYLAXIS
     Dosage: 1 MG, QD
     Route: 048
     Dates: start: 20171229
  28. PERFALGAN [Concomitant]
     Active Substance: ACETAMINOPHEN
     Indication: PREMEDICATION
     Dosage: 1 G, QD
     Route: 042
     Dates: start: 20171229
  29. PANTOPRAZOLE [Concomitant]
     Active Substance: PANTOPRAZOLE
     Indication: PROPHYLAXIS
     Dosage: 40 MG, QD
     Route: 048
     Dates: start: 20180105
  30. VOMEX A [Concomitant]
     Active Substance: DIMENHYDRINATE
     Indication: NAUSEA
     Dosage: 62 MG, SINGLE
     Route: 042
     Dates: start: 20180103, end: 20180103
  31. L-THYROXINE [Concomitant]
     Active Substance: LEVOTHYROXINE
     Indication: GOITRE
     Dosage: 50 UG, QD
     Route: 048
     Dates: start: 1997
  32. ENTRESTO [Concomitant]
     Active Substance: SACUBITRIL\VALSARTAN
     Indication: CARDIAC FAILURE
     Dosage: 0.5 DF, QD
     Route: 048
  33. TRAMADOL. [Concomitant]
     Active Substance: TRAMADOL
     Indication: SPINAL DISORDER
     Dosage: 200 MG, BID
     Route: 048
     Dates: start: 1997

REACTIONS (2)
  - Decreased appetite [Recovered/Resolved]
  - Fatigue [Recovered/Resolved]

NARRATIVE: CASE EVENT DATE: 20180103
